FAERS Safety Report 10339874 (Version 1)
Quarter: 2014Q3

REPORT INFORMATION
  Report Type: Spontaneous
  Country: AR (occurrence: AR)
  Receive Date: 20140724
  Receipt Date: 20140724
  Transmission Date: 20150326
  Serious: Yes (Other)
  Sender: FDA-Public Use
  Company Number: PHHY2014AR090153

PATIENT
  Age: 73 Year
  Sex: Female

DRUGS (3)
  1. LERCANIDIPINE [Interacting]
     Active Substance: LERCANIDIPINE
  2. DRONEDARONE [Interacting]
     Active Substance: DRONEDARONE
  3. METOPROLOL [Suspect]
     Active Substance: METOPROLOL

REACTIONS (3)
  - Drug interaction [Unknown]
  - Atrioventricular block second degree [Recovered/Resolved]
  - Cardiac failure [Unknown]
